FAERS Safety Report 21684219 (Version 1)
Quarter: 2022Q4

REPORT INFORMATION
  Report Type: Spontaneous
  Country: US (occurrence: None)
  Receive Date: 20221204
  Receipt Date: 20221204
  Transmission Date: 20230112
  Serious: Yes (Hospitalization)
  Sender: FDA-Public Use
  Company Number: None

PATIENT
  Sex: Female

DRUGS (8)
  1. PERTZYE [Suspect]
     Active Substance: PANCRELIPASE AMYLASE\PANCRELIPASE LIPASE\PANCRELIPASE PROTEASE
     Indication: Cystic fibrosis
     Dosage: 8000-28750 UNIT ORAL? ?TAKE 5 CAPSULES BY MOUTH THREE TIMES DAILY WITH MEALS AND 2 TO 3 CAPSULES WIT
     Route: 048
     Dates: start: 20180213
  2. ATROVENT HFA [Concomitant]
     Active Substance: IPRATROPIUM BROMIDE
  3. FLONASE ALGY SPR [Concomitant]
  4. FLOVENT HFA [Concomitant]
     Active Substance: FLUTICASONE PROPIONATE
  5. HYPERSAL/NEB [Concomitant]
  6. IPRATROPIUM BR SOLN [Concomitant]
  7. PROBIOTICS NOS [Concomitant]
     Active Substance: PROBIOTICS NOS
  8. PULMOZYME/NEB [Concomitant]

REACTIONS (2)
  - Pneumonia [None]
  - Cough [None]
